FAERS Safety Report 15509139 (Version 1)
Quarter: 2018Q4

REPORT INFORMATION
  Report Type: Spontaneous
  Country: US (occurrence: US)
  Receive Date: 20181016
  Receipt Date: 20181016
  Transmission Date: 20190205
  Serious: Yes (Hospitalization)
  Sender: FDA-Public Use
  Company Number: None

PATIENT
  Age: 23 Year
  Sex: Male
  Weight: 75.6 kg

DRUGS (1)
  1. MEFLOQUINE [Suspect]
     Active Substance: MEFLOQUINE
     Indication: MALARIA
     Dosage: ?          OTHER FREQUENCY:WEEKLY;?
     Dates: start: 20181008, end: 20181015

REACTIONS (7)
  - Hyperhidrosis [None]
  - Palpitations [None]
  - Sinus bradycardia [None]
  - Anxiety [None]
  - Dizziness [None]
  - Heart rate irregular [None]
  - Asthenia [None]

NARRATIVE: CASE EVENT DATE: 20181015
